FAERS Safety Report 8898661 (Version 2)
Quarter: 2013Q1

REPORT INFORMATION
  Report Type: Spontaneous
  Country: US (occurrence: US)
  Receive Date: 20121109
  Receipt Date: 20130121
  Transmission Date: 20140127
  Serious: Yes (Hospitalization)
  Sender: FDA-Public Use
  Company Number: US-BAYER-2012-115284

PATIENT
  Age: 52 Year
  Sex: Female
  Weight: 70.3 kg

DRUGS (6)
  1. OCELLA [Suspect]
     Dosage: UNK
     Dates: start: 200801, end: 20100927
  2. DIOVAN [Concomitant]
  3. CARVEDILOL [Concomitant]
  4. ZETIA [Concomitant]
  5. ASA [Concomitant]
  6. LOVASTATIN [Concomitant]
     Dosage: 40 MG, QD

REACTIONS (2)
  - Deep vein thrombosis [None]
  - Contraindication to medical treatment [None]
